FAERS Safety Report 9849824 (Version 1)
Quarter: 2014Q1

REPORT INFORMATION
  Report Type: Spontaneous
  Country: US (occurrence: None)
  Receive Date: 20140124
  Receipt Date: 20140124
  Transmission Date: 20141002
  Serious: Yes (Other)
  Sender: FDA-Public Use
  Company Number: None

PATIENT
  Age: 31 Year
  Sex: Female
  Weight: 52.16 kg

DRUGS (1)
  1. CIPROFLOXACIN [Suspect]
     Indication: URINARY TRACT INFECTION
     Route: 048
     Dates: start: 20140117, end: 20140117

REACTIONS (6)
  - Pyrexia [None]
  - Arthralgia [None]
  - Anxiety [None]
  - Constipation [None]
  - Pain in extremity [None]
  - Dysuria [None]
